FAERS Safety Report 15593845 (Version 1)
Quarter: 2018Q4

REPORT INFORMATION
  Report Type: Spontaneous
  Country: JP (occurrence: JP)
  Receive Date: 20181106
  Receipt Date: 20181106
  Transmission Date: 20190205
  Serious: Yes (Hospitalization, Other)
  Sender: FDA-Public Use
  Company Number: JP-NOVAST LABORATORIES, LTD-JP-2018NOV000393

PATIENT
  Sex: Female

DRUGS (4)
  1. TOPOTECAN HYDROCHLORIDE. [Suspect]
     Active Substance: TOPOTECAN HYDROCHLORIDE
     Indication: CHEMOTHERAPY
     Dosage: 1.25 MG/M2, ON DAYS 1-5 EVERY 3 WEEKS
  2. BEVACIZUMAB. [Suspect]
     Active Substance: BEVACIZUMAB
     Indication: CHEMOTHERAPY
     Dosage: 15 MG/KG, ON DAY 1 EVERY 4 WEEKS
  3. BEVACIZUMAB. [Suspect]
     Active Substance: BEVACIZUMAB
     Dosage: 15 MG/KG, ON DAY 1 EVERY 3 WEEKS
  4. PACLITAXEL. [Suspect]
     Active Substance: PACLITAXEL
     Indication: CHEMOTHERAPY
     Dosage: 80 MG/M2 ON DAY 1, 8 AND 15

REACTIONS (3)
  - Large intestine perforation [Recovered/Resolved]
  - Potentiating drug interaction [Unknown]
  - Intestinal ischaemia [Unknown]
